FAERS Safety Report 19310649 (Version 14)
Quarter: 2022Q1

REPORT INFORMATION
  Report Type: Report from Study
  Country: None (occurrence: CA)
  Receive Date: 20210526
  Receipt Date: 20220207
  Transmission Date: 20220423
  Serious: Yes (Hospitalization, Other)
  Sender: FDA-Public Use
  Company Number: CA-AKCEA THERAPEUTICS, INC.-2021IS001193

PATIENT
  Age: 61 Year
  Sex: Female
  Weight: 35.864 kg

DRUGS (14)
  1. TEGSEDI [Suspect]
     Active Substance: INOTERSEN SODIUM
     Indication: Hereditary neuropathic amyloidosis
     Route: 058
     Dates: start: 20200403, end: 20210628
  2. DEVICE [Suspect]
     Active Substance: DEVICE
  3. LASIX [Suspect]
     Active Substance: FUROSEMIDE
     Route: 065
  4. CLARITIN [Concomitant]
     Active Substance: LORATADINE
     Route: 048
  5. ASCORBIC ACID W/VITAMIN D NOS [Concomitant]
     Route: 048
  6. VAGISIL /00104701/ [Concomitant]
     Route: 061
  7. MIDODRINE [Concomitant]
     Active Substance: MIDODRINE
     Route: 048
     Dates: start: 2020
  8. VENIXXA [Concomitant]
     Route: 065
  9. LOMOTIL [Concomitant]
     Active Substance: ATROPINE SULFATE\DIPHENOXYLATE HYDROCHLORIDE
     Route: 065
  10. RETINOL [Concomitant]
     Active Substance: RETINOL
     Route: 065
  11. FOSFOMYCIN [Concomitant]
     Active Substance: FOSFOMYCIN
     Route: 048
     Dates: start: 2012
  12. TEGSEDI [Suspect]
     Active Substance: INOTERSEN SODIUM
     Route: 058
     Dates: start: 20200421, end: 202112
  13. OXYMETAZOLINE [Concomitant]
     Active Substance: OXYMETAZOLINE
     Route: 047
  14. TEGSEDI [Suspect]
     Active Substance: INOTERSEN SODIUM
     Route: 058
     Dates: start: 202112

REACTIONS (32)
  - Neuropathy peripheral [Unknown]
  - Hypotension [Not Recovered/Not Resolved]
  - Heart rate increased [Unknown]
  - Malaise [Not Recovered/Not Resolved]
  - Pollakiuria [Not Recovered/Not Resolved]
  - Oedema peripheral [Recovering/Resolving]
  - Dizziness [Unknown]
  - Dysstasia [Unknown]
  - Balance disorder [Unknown]
  - Localised oedema [Unknown]
  - Diarrhoea [Not Recovered/Not Resolved]
  - Constipation [Unknown]
  - Irritable bowel syndrome [Not Recovered/Not Resolved]
  - Blood pressure abnormal [Not Recovered/Not Resolved]
  - Weight increased [Unknown]
  - Fall [Not Recovered/Not Resolved]
  - Feeling abnormal [Not Recovered/Not Resolved]
  - Rehabilitation therapy [Unknown]
  - Upper limb fracture [Not Recovered/Not Resolved]
  - Loss of personal independence in daily activities [Unknown]
  - Urinary tract infection [Recovering/Resolving]
  - Vertigo [Unknown]
  - Faecaloma [Recovered/Resolved]
  - Contusion [Unknown]
  - Dehydration [Not Recovered/Not Resolved]
  - Urine viscosity increased [Not Recovered/Not Resolved]
  - Disease progression [Not Recovered/Not Resolved]
  - Heart rate decreased [Unknown]
  - Loss of consciousness [Not Recovered/Not Resolved]
  - Gastrointestinal disorder [Not Recovered/Not Resolved]
  - Cardiac disorder [Not Recovered/Not Resolved]
  - Orthostatic hypotension [Unknown]

NARRATIVE: CASE EVENT DATE: 20210501
